FAERS Safety Report 5174496-4 (Version None)
Quarter: 2006Q4

REPORT INFORMATION
  Report Type: 
  Country: None (occurrence: None)
  Receive Date: 20061214
  Receipt Date: 20060523
  Transmission Date: 20070319
  Serious: No
  Sender: FDA-Public Use
  Company Number: US-AMGEN-KDL180562

PATIENT
  Sex: Female

DRUGS (2)
  1. ENBREL [Suspect]
     Indication: RHEUMATOID ARTHRITIS
     Route: 058
     Dates: start: 19990101
  2. METHOTREXATE [Concomitant]
     Dates: start: 19980101

REACTIONS (6)
  - CHEST PAIN [None]
  - DIZZINESS [None]
  - NAUSEA [None]
  - PAIN IN JAW [None]
  - TENDON INJURY [None]
  - TENDON PAIN [None]
